FAERS Safety Report 10203455 (Version 2)
Quarter: 2014Q2

REPORT INFORMATION
  Report Type: Spontaneous
  Country: DE (occurrence: DE)
  Receive Date: 20140529
  Receipt Date: 20140610
  Transmission Date: 20141212
  Serious: Yes (Other)
  Sender: FDA-Public Use
  Company Number: DE-GE HEALTHCARE MEDICAL DIAGNOSTICS-OMPQ-PR-1405S-0531

PATIENT
  Age: 22 Year
  Sex: Female
  Weight: 105 kg

DRUGS (2)
  1. ACCUPAQUE [Suspect]
     Indication: CYSTITIS
     Route: 042
     Dates: start: 20140519, end: 20140519
  2. ACCUPAQUE [Suspect]
     Indication: DIAGNOSTIC PROCEDURE

REACTIONS (8)
  - Sneezing [Recovering/Resolving]
  - Cough [Recovering/Resolving]
  - Nasal oedema [Recovering/Resolving]
  - Eye swelling [Recovering/Resolving]
  - Pharyngeal oedema [Recovering/Resolving]
  - Oedema mucosal [Recovering/Resolving]
  - Dyspnoea [Recovering/Resolving]
  - Rash macular [Recovering/Resolving]
